FAERS Safety Report 12914170 (Version 2)
Quarter: 2020Q2

REPORT INFORMATION
  Report Type: Spontaneous
  Country: US (occurrence: US)
  Receive Date: 20161106
  Receipt Date: 20200403
  Transmission Date: 20200713
  Serious: Yes (Death)
  Sender: FDA-Public Use
  Company Number: US-ASTRAZENECA-2016SF14464

PATIENT
  Age: 26433 Day
  Sex: Male
  Weight: 60.3 kg

DRUGS (31)
  1. CRESTOR [Concomitant]
     Active Substance: ROSUVASTATIN CALCIUM
  2. METFORMIN [Concomitant]
     Active Substance: METFORMIN HYDROCHLORIDE
     Dates: start: 20090508, end: 20140401
  3. DEXTROSE. [Concomitant]
     Active Substance: DEXTROSE
     Dates: start: 20140304
  4. BYETTA [Suspect]
     Active Substance: EXENATIDE
     Indication: TYPE 2 DIABETES MELLITUS
     Dosage: 10 MCG
     Route: 065
     Dates: start: 20090303
  5. BYDUREON [Suspect]
     Active Substance: EXENATIDE
     Route: 065
     Dates: start: 20130327
  6. AUGMENTIN [Concomitant]
     Active Substance: AMOXICILLIN\CLAVULANATE POTASSIUM
     Dates: start: 20070830
  7. FLOMAX [Concomitant]
     Active Substance: TAMSULOSIN HYDROCHLORIDE
     Dates: start: 20070922
  8. VIAGRA [Concomitant]
     Active Substance: SILDENAFIL CITRATE
     Dates: start: 20090303
  9. BYDUREON [Suspect]
     Active Substance: EXENATIDE
     Route: 065
     Dates: start: 20130328, end: 20130614
  10. ASPIRIN. [Concomitant]
     Active Substance: ASPIRIN
  11. AVODART [Concomitant]
     Active Substance: DUTASTERIDE
     Dates: start: 20090420
  12. PROMETHAZINE [Concomitant]
     Active Substance: PROMETHAZINE HYDROCHLORIDE
     Dates: start: 20090908
  13. AVAPRO [Concomitant]
     Active Substance: IRBESARTAN
     Dates: start: 20091111
  14. HYDROCO/APAP [Concomitant]
     Active Substance: ACETAMINOPHEN\HYDROCODONE
     Dates: start: 20070830
  15. LORAZEPAM. [Concomitant]
     Active Substance: LORAZEPAM
     Dates: start: 20140221
  16. PACLITAXEL. [Concomitant]
     Active Substance: PACLITAXEL
     Dates: start: 20140304
  17. BYETTA [Suspect]
     Active Substance: EXENATIDE
     Indication: TYPE 2 DIABETES MELLITUS
     Dosage: 5 MCG TWO TIMES DAILY WITH MEAL
     Route: 065
     Dates: start: 20090508, end: 20140408
  18. FLONASE [Concomitant]
     Active Substance: FLUTICASONE PROPIONATE
  19. CIALIS [Concomitant]
     Active Substance: TADALAFIL
     Dates: start: 20070727
  20. PRAVACHOL [Concomitant]
     Active Substance: PRAVASTATIN SODIUM
     Dates: start: 20071122
  21. TUSSIONEX PENNKINETIC [Concomitant]
     Active Substance: CHLORPHENIRAMINE\HYDROCODONE
     Dates: start: 20080201
  22. UROXATRAL [Concomitant]
     Active Substance: ALFUZOSIN HYDROCHLORIDE
     Dates: start: 20080505
  23. CIPROFLOXACN [Concomitant]
     Active Substance: CIPROFLOXACIN
     Dates: start: 20100616
  24. ETODOLAC. [Concomitant]
     Active Substance: ETODOLAC
     Dates: start: 20090908
  25. LEVEMIR [Concomitant]
     Active Substance: INSULIN DETEMIR
     Dates: start: 20130806
  26. DEXAMETHASONE. [Concomitant]
     Active Substance: DEXAMETHASONE
     Dates: start: 20140304
  27. GEMCITABINE. [Concomitant]
     Active Substance: GEMCITABINE
     Dates: start: 20140304
  28. BYETTA [Suspect]
     Active Substance: EXENATIDE
     Indication: TYPE 2 DIABETES MELLITUS
     Route: 065
     Dates: start: 200903, end: 201404
  29. QUINIDINE [Concomitant]
     Active Substance: QUINIDINE
     Dates: start: 20070727
  30. DIAZEPAM. [Concomitant]
     Active Substance: DIAZEPAM
     Dates: start: 20090908
  31. FENOFIBRATE. [Concomitant]
     Active Substance: FENOFIBRATE
     Dates: start: 20100803

REACTIONS (4)
  - Pancreatic carcinoma metastatic [Fatal]
  - Emotional disorder [Unknown]
  - Anger [Unknown]
  - Depression [Unknown]

NARRATIVE: CASE EVENT DATE: 20140217
